FAERS Safety Report 7489056-X (Version None)
Quarter: 2011Q2

REPORT INFORMATION
  Report Type: 
  Country: None (occurrence: None)
  Receive Date: 20110518
  Receipt Date: 20110509
  Transmission Date: 20111010
  Serious: Yes (Hospitalization)
  Sender: FDA-Public Use
  Company Number: US-ELI_LILLY_AND_COMPANY-US201103001725

PATIENT
  Sex: Male

DRUGS (3)
  1. LANTUS [Concomitant]
  2. HUMALOG [Suspect]
     Indication: DIABETES MELLITUS
     Dosage: UNK, 4/D
  3. ANTIHYPERTENSIVES [Concomitant]
     Indication: HYPERTENSION

REACTIONS (5)
  - HYPOTENSION [None]
  - DRUG INEFFECTIVE [None]
  - BLOOD GLUCOSE INCREASED [None]
  - DIZZINESS [None]
  - DEHYDRATION [None]
